FAERS Safety Report 10195421 (Version 2)
Quarter: 2014Q2

REPORT INFORMATION
  Report Type: Spontaneous
  Country: US (occurrence: US)
  Receive Date: 20140526
  Receipt Date: 20140616
  Transmission Date: 20141212
  Serious: Yes (Other)
  Sender: FDA-Public Use
  Company Number: US-TAKEDA-2014TUS004121

PATIENT
  Age: 59 Year
  Sex: Female
  Weight: 81.63 kg

DRUGS (3)
  1. BRINTELLIX [Suspect]
     Indication: MAJOR DEPRESSION
     Dosage: 10 MG, QD
     Route: 048
     Dates: start: 20140313, end: 20140331
  2. BRINTELLIX [Suspect]
     Indication: DEPRESSION
  3. SSRI [Concomitant]
     Indication: MAJOR DEPRESSION
     Route: 048

REACTIONS (2)
  - Suicidal ideation [Recovered/Resolved]
  - Condition aggravated [Recovered/Resolved]
